FAERS Safety Report 20429055 (Version 1)
Quarter: 2022Q1

REPORT INFORMATION
  Report Type: Spontaneous
  Country: ES (occurrence: None)
  Receive Date: 20220204
  Receipt Date: 20220204
  Transmission Date: 20220423
  Serious: Yes (Other)
  Sender: FDA-Public Use
  Company Number: 2022A050820

PATIENT
  Age: 50 Year
  Sex: Female

DRUGS (5)
  1. TAGRISSO [Suspect]
     Active Substance: OSIMERTINIB
     Indication: Lung neoplasm malignant
     Dosage: ON ALTERNATE DAYS
     Route: 048
     Dates: start: 202102
  2. TAGRISSO [Suspect]
     Active Substance: OSIMERTINIB
     Indication: Lung neoplasm malignant
     Dosage: ON ALTERNATE DAYS
     Route: 048
  3. DEXAMETHASONE [Concomitant]
     Active Substance: DEXAMETHASONE
     Indication: Metastases to central nervous system
  4. KEPPRA [Concomitant]
     Active Substance: LEVETIRACETAM
     Indication: Metastases to central nervous system
  5. CYMBALTA [Concomitant]
     Active Substance: DULOXETINE HYDROCHLORIDE

REACTIONS (12)
  - Muscle spasms [Unknown]
  - Ill-defined disorder [Unknown]
  - Liver disorder [Unknown]
  - Speech disorder [Unknown]
  - Weight decreased [Unknown]
  - Gastric disorder [Unknown]
  - Dry mouth [Unknown]
  - Incontinence [Unknown]
  - Nail disorder [Unknown]
  - Insomnia [Unknown]
  - Quality of life decreased [Unknown]
  - Off label use [Unknown]
